FAERS Safety Report 8204390-3 (Version None)
Quarter: 2012Q1

REPORT INFORMATION
  Report Type: 
  Country: None (occurrence: None)
  Receive Date: 20120313
  Receipt Date: 20120313
  Transmission Date: 20120608
  Serious: Yes (Hospitalization)
  Sender: FDA-Public Use
  Company Number: None

PATIENT
  Sex: Male
  Weight: 61.234 kg

DRUGS (1)
  1. GABAPENTIN [Suspect]

REACTIONS (8)
  - HEADACHE [None]
  - DIZZINESS [None]
  - NAUSEA [None]
  - MUSCULAR WEAKNESS [None]
  - DEPERSONALISATION [None]
  - DYSPEPSIA [None]
  - VOMITING [None]
  - GASTROOESOPHAGEAL REFLUX DISEASE [None]
